FAERS Safety Report 10754926 (Version 1)
Quarter: 2015Q1

REPORT INFORMATION
  Report Type: Spontaneous
  Country: US (occurrence: None)
  Receive Date: 20150130
  Receipt Date: 20150130
  Transmission Date: 20150721
  Serious: No
  Sender: FDA-Public Use
  Company Number: None

PATIENT
  Age: 29 Year
  Sex: Female
  Weight: 102.06 kg

DRUGS (1)
  1. GRALISE [Suspect]
     Active Substance: GABAPENTIN
     Indication: BACK PAIN
     Dosage: AT BEDTIME, TAKEN BY MOUTH
     Dates: start: 20150122, end: 20150129

REACTIONS (8)
  - Decreased interest [None]
  - Depressed mood [None]
  - Violence-related symptom [None]
  - Depression [None]
  - Fatigue [None]
  - Irritability [None]
  - Suicidal ideation [None]
  - Decreased appetite [None]

NARRATIVE: CASE EVENT DATE: 20150129
